FAERS Safety Report 10229716 (Version 1)
Quarter: 2014Q2

REPORT INFORMATION
  Report Type: Spontaneous
  Country: FR (occurrence: FR)
  Receive Date: 20140611
  Receipt Date: 20140611
  Transmission Date: 20141212
  Serious: Yes (Hospitalization)
  Sender: FDA-Public Use
  Company Number: PHHY2014FR070017

PATIENT
  Age: 69 Year
  Sex: Male

DRUGS (16)
  1. AFINITOR [Suspect]
     Indication: RENAL NEOPLASM
     Dosage: 1 DF, QD
     Route: 048
     Dates: start: 201403
  2. AFINITOR [Suspect]
     Dosage: UNK
     Dates: start: 20140401, end: 20140416
  3. AFINITOR [Suspect]
     Dosage: UNK
     Dates: start: 20140417, end: 201405
  4. AFINITOR [Suspect]
     Dosage: UNK
     Dates: start: 20140519
  5. AFINITOR [Suspect]
     Dosage: UNK
  6. RAMIPRIL [Concomitant]
     Dosage: 5 MG, QD
     Route: 048
  7. PAROXETINE [Concomitant]
     Dosage: 20 MG, QD
     Route: 048
     Dates: start: 20140401
  8. CARVEDILOL [Concomitant]
     Dosage: 25 MG, BID
     Route: 048
  9. AMLOR [Concomitant]
     Dosage: 1 DF, QD
     Route: 048
  10. XANAX [Concomitant]
     Dosage: 0.25 MG, UNK
  11. XANAX [Concomitant]
     Dosage: 0.5 MG, TID
     Route: 048
  12. CRESTOR [Concomitant]
     Dosage: 1 DF, QD
     Route: 048
  13. KARDEGIC [Concomitant]
     Dosage: 1 DF, QD
     Route: 048
  14. LACTULOSE [Concomitant]
     Dosage: 1 DF, BID (IF NEEDED)
  15. FUROSEMIDE [Concomitant]
     Dosage: 20 MG, UNK
     Route: 048
  16. PARACETAMOL [Concomitant]
     Dosage: 1 G, PRN

REACTIONS (4)
  - Major depression [Recovered/Resolved]
  - Asthenia [Recovered/Resolved]
  - Decreased appetite [Recovered/Resolved]
  - Weight decreased [Recovered/Resolved]
